FAERS Safety Report 19283826 (Version 2)
Quarter: 2021Q2

REPORT INFORMATION
  Report Type: Spontaneous
  Country: US (occurrence: US)
  Receive Date: 20210520
  Receipt Date: 20210529
  Transmission Date: 20210717
  Serious: Yes (Other)
  Sender: FDA-Public Use
  Company Number: US-DRREDDYS-USA/USA/21/0135652

PATIENT
  Age: 79 Year
  Sex: Female

DRUGS (2)
  1. ELTROMBOPAG [Suspect]
     Active Substance: ELTROMBOPAG
     Indication: PANCYTOPENIA
  2. DECITABINE. [Suspect]
     Active Substance: DECITABINE
     Indication: PANCYTOPENIA

REACTIONS (1)
  - Drug ineffective [Unknown]
